FAERS Safety Report 9397084 (Version 2)
Quarter: 2013Q3

REPORT INFORMATION
  Report Type: Spontaneous
  Country: US (occurrence: US)
  Receive Date: 20130712
  Receipt Date: 20130725
  Transmission Date: 20140515
  Serious: No
  Sender: FDA-Public Use
  Company Number: US-PFIZER INC-2013204394

PATIENT
  Age: 47 Year
  Sex: Male
  Weight: 99.77 kg

DRUGS (2)
  1. NEURONTIN [Suspect]
     Indication: DIABETIC NEUROPATHY
     Dosage: 900 MG (BY TAKING 3 ORAL CAPSULES OF 300MG), 3X/DAY
     Route: 048
     Dates: end: 201306
  2. METFORMIN [Concomitant]
     Dosage: UNK

REACTIONS (6)
  - Off label use [Unknown]
  - Pain in extremity [Unknown]
  - Gait disturbance [Unknown]
  - Pain [Unknown]
  - Dysstasia [Unknown]
  - Impaired work ability [Unknown]
